FAERS Safety Report 4492018-8 (Version None)
Quarter: 2004Q4

REPORT INFORMATION
  Report Type: 
  Country: None (occurrence: None)
  Receive Date: 20041101
  Receipt Date: 20041018
  Transmission Date: 20050328
  Serious: Yes (Hospitalization)
  Sender: FDA-Public Use
  Company Number: 2004-121545-NL

PATIENT
  Age: 36 Year
  Sex: Female

DRUGS (4)
  1. MENOTROPINS [Suspect]
     Dates: start: 20040101
  2. HCG [Suspect]
     Dosage: DF
     Dates: start: 20040101
  3. GNRHA [Concomitant]
  4. PROGESTERONE [Concomitant]

REACTIONS (3)
  - DRUG EXPOSURE DURING PREGNANCY [None]
  - ECTOPIC PREGNANCY [None]
  - INTRA-ABDOMINAL HAEMORRHAGE [None]
